FAERS Safety Report 7659547-7 (Version None)
Quarter: 2011Q3

REPORT INFORMATION
  Report Type: 
  Country: None (occurrence: None)
  Receive Date: 20110805
  Receipt Date: 20110724
  Transmission Date: 20111222
  Serious: Yes (Hospitalization)
  Sender: FDA-Public Use
  Company Number: CA-ELI_LILLY_AND_COMPANY-CA201107003379

PATIENT
  Age: 63 Year
  Sex: Female

DRUGS (19)
  1. FORTEO [Suspect]
     Dosage: 20 UG, QD
     Route: 058
     Dates: start: 20101116, end: 20101120
  2. CORTEF [Concomitant]
  3. VITAMIN B-12 [Concomitant]
  4. CALCIUM ACETATE [Concomitant]
  5. LACTAID [Concomitant]
  6. MULTI-VITAMIN [Concomitant]
  7. VITAMIN D [Concomitant]
  8. FORTEO [Suspect]
     Dosage: 20 UG, QD
     Route: 058
  9. FERROUS SULFATE TAB [Concomitant]
  10. ALVESCO [Concomitant]
  11. FORTEO [Suspect]
     Dosage: 20 UG, QD
     Route: 058
     Dates: start: 20101125
  12. SYNTHROID [Concomitant]
  13. BIAXIN [Concomitant]
  14. ADVAIR DISKUS 100/50 [Concomitant]
  15. FORTEO [Suspect]
     Dosage: 20 UG, QD
     Route: 058
  16. ESTRACE [Concomitant]
  17. NOVO-HYDRAZIDE [Concomitant]
  18. FORTEO [Suspect]
     Indication: OSTEOPOROSIS
     Dosage: 20 UG, QD
     Route: 058
     Dates: start: 20100513, end: 20101103
  19. NEXIUM [Concomitant]

REACTIONS (6)
  - DIARRHOEA HAEMORRHAGIC [None]
  - DIARRHOEA [None]
  - ANXIETY [None]
  - FAECES DISCOLOURED [None]
  - ABDOMINAL PAIN [None]
  - BONE PAIN [None]
